FAERS Safety Report 17718373 (Version 1)
Quarter: 2020Q2

REPORT INFORMATION
  Report Type: Spontaneous
  Country: ES (occurrence: ES)
  Receive Date: 20200428
  Receipt Date: 20200428
  Transmission Date: 20200714
  Serious: Yes (Life-Threatening)
  Sender: FDA-Public Use
  Company Number: NVSC2020ES113961

PATIENT
  Age: 51 Year
  Sex: Female

DRUGS (1)
  1. ZOLPIDEM [Suspect]
     Active Substance: ZOLPIDEM TARTRATE
     Indication: INSOMNIA
     Dosage: 20 MG, Q24H
     Route: 048
     Dates: start: 20100723, end: 20200121

REACTIONS (4)
  - Aggression [Unknown]
  - Somnambulism [Unknown]
  - Paraphilia [Unknown]
  - Hallucination [Unknown]

NARRATIVE: CASE EVENT DATE: 20180101
